FAERS Safety Report 23140061 (Version 5)
Quarter: 2024Q1

REPORT INFORMATION
  Report Type: Spontaneous
  Country: US (occurrence: US)
  Receive Date: 20231102
  Receipt Date: 20240115
  Transmission Date: 20240410
  Serious: No
  Sender: FDA-Public Use
  Company Number: US-PFIZER INC-PV202300176785

PATIENT
  Age: 70 Year
  Sex: Female
  Weight: 70.748 kg

DRUGS (2)
  1. EUCRISA [Suspect]
     Active Substance: CRISABOROLE
     Indication: Psoriasis
     Dosage: UNK, 2X/DAY (TO LEGS, HANDS, + FACE)
     Dates: start: 20231113, end: 20231115
  2. EUCRISA [Suspect]
     Active Substance: CRISABOROLE
     Indication: Eczema

REACTIONS (3)
  - Dermatitis [Recovered/Resolved]
  - Rash [Recovered/Resolved]
  - Pruritus [Recovered/Resolved]
